APPROVED DRUG PRODUCT: VESPRIN
Active Ingredient: TRIFLUPROMAZINE HYDROCHLORIDE
Strength: 3MG/ML
Dosage Form/Route: INJECTABLE;INJECTION
Application: N011325 | Product #005
Applicant: APOTHECON INC DIV BRISTOL MYERS SQUIBB
Approved: Approved Prior to Jan 1, 1982 | RLD: No | RS: No | Type: DISCN